FAERS Safety Report 6280211-3 (Version None)
Quarter: 2009Q3

REPORT INFORMATION
  Report Type: 
  Country: None (occurrence: None)
  Receive Date: 20090723
  Receipt Date: 20090713
  Transmission Date: 20100115
  Serious: Yes (Other)
  Sender: FDA-Public Use
  Company Number: US-ABBOTT-07P-163-0367265-00

PATIENT
  Sex: Female
  Weight: 90.8 kg

DRUGS (18)
  1. DEPAKOTE [Suspect]
     Indication: DEPRESSION
  2. DEPAKOTE [Suspect]
     Indication: BIPOLAR I DISORDER
  3. HALDOL [Suspect]
     Indication: SCHIZOAFFECTIVE DISORDER
     Route: 050
  4. HALDOL [Suspect]
     Indication: BIPOLAR I DISORDER
     Route: 050
  5. HALDOL [Suspect]
  6. LITHIUM CARBONATE [Suspect]
     Indication: BIPOLAR I DISORDER
  7. LITHIUM CARBONATE [Suspect]
  8. HALYADAL [Suspect]
     Indication: DRUG USE FOR UNKNOWN INDICATION
  9. DEPO-PROVERA [Suspect]
     Indication: CONTRACEPTION
  10. DEPO-PROVERA [Suspect]
  11. LEVOXYL [Suspect]
     Indication: DRUG USE FOR UNKNOWN INDICATION
  12. LEVOXYL [Suspect]
  13. ZYPREXA [Suspect]
     Indication: BIPOLAR I DISORDER
  14. ZYPREXA [Suspect]
  15. INDERAL [Concomitant]
     Indication: DRUG USE FOR UNKNOWN INDICATION
  16. ATIVAN [Concomitant]
     Indication: DRUG USE FOR UNKNOWN INDICATION
  17. ZYPREXA [Concomitant]
     Indication: DRUG USE FOR UNKNOWN INDICATION
  18. BENADRYL [Concomitant]
     Indication: DRUG USE FOR UNKNOWN INDICATION

REACTIONS (16)
  - ABNORMAL BEHAVIOUR [None]
  - BLOOD URINE PRESENT [None]
  - CARDIAC DISORDER [None]
  - CARDIOVASCULAR DISORDER [None]
  - DYSPNOEA [None]
  - EXTRAPYRAMIDAL DISORDER [None]
  - GAIT DISTURBANCE [None]
  - HAEMATOCHEZIA [None]
  - HAEMORRHAGE [None]
  - MALAISE [None]
  - METRORRHAGIA [None]
  - MUSCLE RIGIDITY [None]
  - MUSCULOSKELETAL STIFFNESS [None]
  - RESTLESSNESS [None]
  - VOMITING [None]
  - WEIGHT INCREASED [None]
